FAERS Safety Report 9878531 (Version 2)
Quarter: 2014Q1

REPORT INFORMATION
  Report Type: Spontaneous
  Country: US (occurrence: US)
  Receive Date: 20140206
  Receipt Date: 20140206
  Transmission Date: 20141002
  Serious: No
  Sender: FDA-Public Use
  Company Number: US-ALLERGAN-1312468US

PATIENT
  Age: 47 Year
  Sex: Female

DRUGS (3)
  1. BOTOX [Suspect]
     Indication: MIGRAINE
     Dosage: UNK, SINGLE
     Route: 030
     Dates: start: 20130809, end: 20130809
  2. TOPIRAMATE [Concomitant]
     Indication: MIGRAINE PROPHYLAXIS
  3. BIRTH CONTROL NOS [Concomitant]
     Indication: PRODUCT USED FOR UNKNOWN INDICATION

REACTIONS (5)
  - Viral infection [Unknown]
  - Dysphagia [Not Recovered/Not Resolved]
  - Neck pain [Unknown]
  - Muscular weakness [Unknown]
  - Off label use [Unknown]
